FAERS Safety Report 13522433 (Version 1)
Quarter: 2017Q2

REPORT INFORMATION
  Report Type: Spontaneous
  Country: US (occurrence: US)
  Receive Date: 20170508
  Receipt Date: 20170508
  Transmission Date: 20170830
  Serious: Yes (Hospitalization, Other)
  Sender: FDA-Public Use
  Company Number: US-PFIZER INC-2017190757

PATIENT
  Age: 50 Year
  Sex: Female
  Weight: 84.37 kg

DRUGS (7)
  1. ALPRAZOLAM. [Concomitant]
     Active Substance: ALPRAZOLAM
     Indication: PANIC ATTACK
     Dosage: 1.5 MG, 3X/DAY
     Route: 060
  2. ALPRAZOLAM. [Concomitant]
     Active Substance: ALPRAZOLAM
     Indication: ANXIETY
     Dosage: 1 MG, 3X/DAY
     Route: 060
     Dates: start: 2011
  3. MELATONIN [Concomitant]
     Active Substance: MELATONIN
     Indication: INSOMNIA
     Dosage: 10 MG, UNK (TAKE 2-3 CAPSULES)
     Route: 048
  4. LYRICA [Suspect]
     Active Substance: PREGABALIN
     Indication: FIBROMYALGIA
     Dosage: 100 MG, 3X/DAY
  5. SINGULAIR [Concomitant]
     Active Substance: MONTELUKAST SODIUM
     Indication: HYPERSENSITIVITY
     Dosage: UNK (TAKES AT NIGHT)
  6. LYRICA [Suspect]
     Active Substance: PREGABALIN
     Dosage: 150 MG, 3X/DAY
     Route: 048
     Dates: start: 2012, end: 201701
  7. CLARITIN [Concomitant]
     Active Substance: LORATADINE
     Dosage: UNK (DURING THE DAY)

REACTIONS (13)
  - Drug dose omission [Unknown]
  - Eye disorder [Unknown]
  - Weight increased [Unknown]
  - Anxiety [Recovering/Resolving]
  - Rotator cuff syndrome [Unknown]
  - Malaise [Unknown]
  - Fall [Recovering/Resolving]
  - Pain [Unknown]
  - Neuralgia [Unknown]
  - Feeling abnormal [Unknown]
  - Arthralgia [Unknown]
  - Visual impairment [Recovering/Resolving]
  - Intentional product misuse [Unknown]

NARRATIVE: CASE EVENT DATE: 201701
